FAERS Safety Report 26077858 (Version 1)
Quarter: 2025Q4

REPORT INFORMATION
  Report Type: Spontaneous
  Country: US (occurrence: US)
  Receive Date: 20251122
  Receipt Date: 20251122
  Transmission Date: 20260118
  Serious: No
  Sender: MDD OPERATIONS
  Company Number: US-MDD US Operations-MDD202509-003660

PATIENT
  Age: 78 Year
  Sex: Male

DRUGS (2)
  1. ONAPGO [Suspect]
     Active Substance: APOMORPHINE HYDROCHLORIDE
     Indication: Parkinson^s disease
     Dosage: FOR INFUSION UP TO 16 HOURS A DAY
     Dates: start: 20250908
  2. ONAPGO [Suspect]
     Active Substance: APOMORPHINE HYDROCHLORIDE
     Dosage: 2 MG PER HOUR FOR UPTO 16 HOURS
     Dates: start: 202509

REACTIONS (11)
  - Dissociation [Unknown]
  - Nodule [Recovering/Resolving]
  - Erythema [Recovering/Resolving]
  - Facial pain [Unknown]
  - Contusion [Unknown]
  - Headache [Unknown]
  - Dizziness [Unknown]
  - Somnolence [Unknown]
  - Fatigue [Unknown]
  - Fall [Unknown]
  - Hallucination [Unknown]

NARRATIVE: CASE EVENT DATE: 20250910
